FAERS Safety Report 6190481-8 (Version None)
Quarter: 2009Q2

REPORT INFORMATION
  Report Type: 
  Country: None (occurrence: None)
  Receive Date: 20090513
  Receipt Date: 20090513
  Transmission Date: 20091009
  Serious: Yes (Other)
  Sender: FDA-Public Use
  Company Number: None

PATIENT
  Age: 64 Year
  Sex: Female
  Weight: 94.8018 kg

DRUGS (2)
  1. CYMBALTA [Suspect]
     Indication: DIABETIC COMPLICATION
     Dosage: 60MG 1 CAPSULE DAILY PO
     Route: 048
     Dates: start: 20090412, end: 20090422
  2. CYMBALTA [Suspect]
     Indication: PAIN
     Dosage: 60MG 1 CAPSULE DAILY PO
     Route: 048
     Dates: start: 20090412, end: 20090422

REACTIONS (1)
  - RESTLESS LEGS SYNDROME [None]
